FAERS Safety Report 13245998 (Version 1)
Quarter: 2017Q1

REPORT INFORMATION
  Report Type: Spontaneous
  Country: DE (occurrence: DE)
  Receive Date: 20170217
  Receipt Date: 20170217
  Transmission Date: 20170428
  Serious: Yes (Other)
  Sender: FDA-Public Use
  Company Number: DE-AMGEN-DEUSP2017025488

PATIENT
  Age: 12 Year
  Sex: Male

DRUGS (1)
  1. ENBREL [Suspect]
     Active Substance: ETANERCEPT
     Indication: JUVENILE IDIOPATHIC ARTHRITIS
     Dosage: 25 MG, EVERY 6 DAYS
     Route: 065
     Dates: start: 20151030

REACTIONS (2)
  - Infection susceptibility increased [Not Recovered/Not Resolved]
  - Fungal infection [Not Recovered/Not Resolved]
